FAERS Safety Report 9424426 (Version 1)
Quarter: 2013Q3

REPORT INFORMATION
  Report Type: Spontaneous
  Country: US (occurrence: None)
  Receive Date: 20130726
  Receipt Date: 20130726
  Transmission Date: 20140515
  Serious: Yes (Hospitalization)
  Sender: FDA-Public Use
  Company Number: None

PATIENT
  Age: 38 Year
  Sex: Female
  Weight: 69.85 kg

DRUGS (11)
  1. TOPIRAMATE [Suspect]
     Indication: HEADACHE
     Route: 048
     Dates: start: 20130517, end: 20130710
  2. SUPER D3 COMPLEX [Concomitant]
  3. CYMBALTA 60MG [Concomitant]
  4. BACLOFEN 10MG [Concomitant]
  5. LYRICA 50MG TO 100 MGS DAILY EVERGREEN PHARMACY [Concomitant]
  6. LYRICA 100MG [Concomitant]
  7. MELOXICAM 7.5MG [Concomitant]
  8. LUTERA TABLETS 28 [Concomitant]
  9. TIZANIDINE 2MG [Concomitant]
  10. METHYLPHENIDATE 10MG [Concomitant]
  11. XANAX 1MG GREENSTONE LTD [Concomitant]

REACTIONS (3)
  - Pain [None]
  - Hemiparesis [None]
  - Fatigue [None]
